FAERS Safety Report 14039577 (Version 3)
Quarter: 2018Q1

REPORT INFORMATION
  Report Type: Spontaneous
  Country: US (occurrence: US)
  Receive Date: 20171004
  Receipt Date: 20180206
  Transmission Date: 20180508
  Serious: Yes (Life-Threatening, Other)
  Sender: FDA-Public Use
  Company Number: US-PFIZER INC-2017425334

PATIENT
  Age: 59 Year
  Sex: Female
  Weight: 74 kg

DRUGS (4)
  1. PRISTIQ EXTENDED-RELEASE [Concomitant]
     Active Substance: DESVENLAFAXINE SUCCINATE
     Indication: DEPRESSION
     Dosage: 100 MG, DAILY
     Route: 048
  2. LOSARTAN AND HYDROCHLOROTHIAZIDE [Concomitant]
     Active Substance: HYDROCHLOROTHIAZIDE\LOSARTAN POTASSIUM
     Indication: HYPERTENSION
     Dosage: [LOSARTAN POTASSIUM 20]/[HYDROCHLOROTHIAZIDE 25MG], 1X/DAY
     Route: 048
  3. LYRICA [Suspect]
     Active Substance: PREGABALIN
     Indication: NEURALGIA
     Dosage: 150 MG, 3X/DAY
     Route: 048
     Dates: end: 201708
  4. GABAPENTIN. [Concomitant]
     Active Substance: GABAPENTIN
     Indication: NEURALGIA
     Dosage: 2400 MG, UNK

REACTIONS (9)
  - Mood swings [Recovered/Resolved]
  - Abdominal distension [Unknown]
  - Suicidal ideation [Recovered/Resolved]
  - Social avoidant behaviour [Recovered/Resolved]
  - Thought blocking [Recovered/Resolved]
  - Fatigue [Recovered/Resolved]
  - Weight increased [Not Recovered/Not Resolved]
  - Intervertebral disc degeneration [Unknown]
  - Drug ineffective [Not Recovered/Not Resolved]

NARRATIVE: CASE EVENT DATE: 2017
